FAERS Safety Report 5720740-1 (Version None)
Quarter: 2008Q2

REPORT INFORMATION
  Report Type: 
  Country: None (occurrence: None)
  Receive Date: 20080429
  Receipt Date: 20080423
  Transmission Date: 20081010
  Serious: Yes (Other)
  Sender: FDA-Public Use
  Company Number: PHEH2008US04058

PATIENT

DRUGS (2)
  1. DIOVAN [Suspect]
  2. PHOSPHO-SODA [Suspect]

REACTIONS (2)
  - DRUG INTERACTION [None]
  - RENAL FAILURE [None]
